FAERS Safety Report 7744880-0 (Version None)
Quarter: 2011Q3

REPORT INFORMATION
  Report Type: 
  Country: None (occurrence: None)
  Receive Date: 20110912
  Receipt Date: 20110906
  Transmission Date: 20111222
  Serious: Yes (Hospitalization, Other)
  Sender: FDA-Public Use
  Company Number: US-AMGEN-USASP2011045672

PATIENT
  Age: 73 Year
  Sex: Female

DRUGS (3)
  1. PROLIA [Suspect]
     Indication: OSTEOPOROSIS POSTMENOPAUSAL
     Dosage: 60 MG, Q6MO
     Dates: start: 20101201
  2. HYDROCHLOROTHIAZIDE [Concomitant]
  3. VITAMIN D [Concomitant]

REACTIONS (11)
  - WHEELCHAIR USER [None]
  - VASCULITIS [None]
  - UPPER RESPIRATORY TRACT INFECTION [None]
  - ARTHRALGIA [None]
  - OEDEMA PERIPHERAL [None]
  - BED REST [None]
  - GAIT DISTURBANCE [None]
  - PNEUMONIA [None]
  - PHARYNGITIS [None]
  - OSTEONECROSIS [None]
  - WEIGHT INCREASED [None]
